FAERS Safety Report 24433975 (Version 1)
Quarter: 2024Q4

REPORT INFORMATION
  Report Type: Spontaneous
  Country: GB (occurrence: GB)
  Receive Date: 20241014
  Receipt Date: 20241014
  Transmission Date: 20250115
  Serious: Yes (Hospitalization, Other)
  Sender: B BRAUN
  Company Number: GB-B.Braun Medical Inc.-2162992

PATIENT
  Age: 75 Year
  Sex: Female

DRUGS (23)
  1. MEROPENEM [Suspect]
     Active Substance: MEROPENEM
     Dates: start: 20220221, end: 20220228
  2. LANSOPRAZOLE [Suspect]
     Active Substance: LANSOPRAZOLE
  3. POLYETHYLENE GLYCOL 3350\POTASSIUM CHLORIDE\SODIUM BICARBONATE\SODIUM [Concomitant]
     Active Substance: POLYETHYLENE GLYCOL 3350\POTASSIUM CHLORIDE\SODIUM BICARBONATE\SODIUM CHLORIDE
  4. PREMARIN [Concomitant]
     Active Substance: ESTROGENS, CONJUGATED
  5. CARBOMER [Concomitant]
     Active Substance: CARBOMER
  6. VENTOLIN [Concomitant]
     Active Substance: ALBUTEROL SULFATE
  7. TRELEGY ELLIPTA [Concomitant]
     Active Substance: FLUTICASONE FUROATE\UMECLIDINIUM BROMIDE\VILANTEROL TRIFENATATE
  8. CALCIUM CARBONATE\CHOLECALCIFEROL [Concomitant]
     Active Substance: CALCIUM CARBONATE\CHOLECALCIFEROL
  9. Macrogol compound oral powder sachets npf sugar free [Concomitant]
  10. Conjugated oestrogens 625 microgram [Concomitant]
  11. CARBOMER [Concomitant]
     Active Substance: CARBOMER
  12. ALBUTEROL [Concomitant]
     Active Substance: ALBUTEROL
  13. SPIRONOLACTONE [Concomitant]
     Active Substance: SPIRONOLACTONE
  14. MEBEVERINE [Concomitant]
     Active Substance: MEBEVERINE
  15. FUROSEMIDE [Concomitant]
     Active Substance: FUROSEMIDE
  16. FOLIC ACID [Concomitant]
     Active Substance: FOLIC ACID
  17. COLESEVELAM [Concomitant]
     Active Substance: COLESEVELAM
  18. Chemydur 60xl tablets [Concomitant]
  19. BECLOMETHASONE DIPROPIONATE [Concomitant]
     Active Substance: BECLOMETHASONE DIPROPIONATE
  20. ASPIRIN [Concomitant]
     Active Substance: ASPIRIN
  21. Colecalciferol 200unit /calcium carbonate 750mg [Concomitant]
  22. ACETYLCYSTEINE [Concomitant]
     Active Substance: ACETYLCYSTEINE
  23. PIPERACILLIN. [Suspect]
     Active Substance: PIPERACILLIN SODIUM

REACTIONS (4)
  - Clostridium difficile infection [Unknown]
  - Drug ineffective [Unknown]
  - Pneumonia [Unknown]
  - Diarrhoea [Unknown]
